FAERS Safety Report 7235302-7 (Version None)
Quarter: 2011Q1

REPORT INFORMATION
  Report Type: 
  Country: None (occurrence: None)
  Receive Date: 20110120
  Receipt Date: 20110112
  Transmission Date: 20110831
  Serious: Yes (Other)
  Sender: FDA-Public Use
  Company Number: CA-JNJFOC-20110103706

PATIENT
  Sex: Female
  Weight: 43 kg

DRUGS (3)
  1. REMICADE [Suspect]
     Route: 042
  2. REMICADE [Suspect]
     Indication: PRODUCT USED FOR UNKNOWN INDICATION
     Route: 042
  3. RADIATION THERAPY NOS [Concomitant]
     Indication: LUNG NEOPLASM MALIGNANT
     Dosage: 10 DAYS OF TREATMENT SINCE LAST INFUSION

REACTIONS (2)
  - WRIST FRACTURE [None]
  - LUNG NEOPLASM MALIGNANT [None]
